FAERS Safety Report 5981578-3 (Version None)
Quarter: 2008Q4

REPORT INFORMATION
  Report Type: 
  Country: None (occurrence: None)
  Receive Date: 20081205
  Receipt Date: 20081125
  Transmission Date: 20090506
  Serious: Yes (Hospitalization)
  Sender: FDA-Public Use
  Company Number: JP-EISAI MEDIAL RESEARCH-E3810-02354-SPO-JP

PATIENT
  Age: 70 Year
  Sex: Male
  Weight: 60 kg

DRUGS (4)
  1. RABEPRAZOLE SODIUM [Suspect]
     Indication: HELICOBACTER INFECTION
     Route: 048
     Dates: start: 20070908, end: 20070911
  2. CLARITHROMYCIN [Suspect]
     Indication: HELICOBACTER INFECTION
     Route: 048
     Dates: start: 20070908, end: 20070911
  3. PASETOCIN [Suspect]
     Indication: HELICOBACTER INFECTION
     Route: 048
     Dates: start: 20070908, end: 20070911
  4. BIOFERMIN R [Concomitant]
     Indication: HELICOBACTER INFECTION
     Route: 048
     Dates: start: 20070908, end: 20070911

REACTIONS (1)
  - ENTEROCOLITIS HAEMORRHAGIC [None]
